FAERS Safety Report 17696410 (Version 3)
Quarter: 2020Q3

REPORT INFORMATION
  Report Type: Report from Study
  Country: None (occurrence: US)
  Receive Date: 20200423
  Receipt Date: 20200717
  Transmission Date: 20201102
  Serious: Yes (Death)
  Sender: FDA-Public Use
  Company Number: US-ABBVIE-20K-163-3375078-00

PATIENT
  Sex: Male
  Weight: 103.51 kg

DRUGS (1)
  1. SYNTHROID [Suspect]
     Active Substance: LEVOTHYROXINE SODIUM
     Indication: HYPOTHYROIDISM
     Dosage: 10 YEARS
     Route: 048

REACTIONS (1)
  - Cardiac death [Fatal]
